FAERS Safety Report 6795583-0 (Version None)
Quarter: 2010Q2

REPORT INFORMATION
  Report Type: 
  Country: None (occurrence: None)
  Receive Date: 20100625
  Receipt Date: 20100615
  Transmission Date: 20101027
  Serious: Yes (Hospitalization, Other)
  Sender: FDA-Public Use
  Company Number: IL-ABBOTT-10P-082-0651326-00

PATIENT
  Sex: Female

DRUGS (7)
  1. REDUCTIL 10MG [Suspect]
     Indication: OVERWEIGHT
     Route: 048
     Dates: start: 20100515, end: 20100518
  2. CLOPIDOGREL [Concomitant]
     Indication: CARDIAC DISORDER
     Route: 048
     Dates: start: 20090101
  3. RAMIPRIL [Concomitant]
     Indication: BLOOD PRESSURE
     Route: 048
     Dates: start: 20090101
  4. ELTROXIN [Concomitant]
     Indication: THYROID DISORDER
     Route: 048
     Dates: start: 20090101
  5. CARDILOC [Concomitant]
     Indication: CARDIAC DISORDER
     Route: 048
     Dates: start: 20090101
  6. CRESTOR [Concomitant]
     Indication: BLOOD CHOLESTEROL
     Route: 048
     Dates: start: 20090101
  7. CONTROLOC [Concomitant]
     Indication: GASTRIC ULCER
     Route: 048
     Dates: start: 20090101

REACTIONS (6)
  - AMAUROSIS FUGAX [None]
  - DIZZINESS [None]
  - HEAD DISCOMFORT [None]
  - HEADACHE [None]
  - MUSCULOSKELETAL STIFFNESS [None]
  - VISION BLURRED [None]
